FAERS Safety Report 9034445 (Version 2)
Quarter: 2013Q2

REPORT INFORMATION
  Report Type: Spontaneous
  Country: US (occurrence: US)
  Receive Date: 20130128
  Receipt Date: 20130520
  Transmission Date: 20140414
  Serious: Yes (Hospitalization, Other)
  Sender: FDA-Public Use
  Company Number: US-009507513-1301USA011633

PATIENT
  Age: 23 Year
  Sex: Female
  Weight: 78.46 kg

DRUGS (1)
  1. IMPLANON [Suspect]
     Indication: CONTRACEPTION
     Dosage: 1 DF, UNK
     Dates: start: 201102, end: 20130123

REACTIONS (7)
  - Surgery [Recovered/Resolved]
  - Weight increased [Unknown]
  - Device difficult to use [Recovered/Resolved]
  - General anaesthesia [Recovered/Resolved]
  - Medical device complication [Recovered/Resolved]
  - Device deployment issue [Recovered/Resolved]
  - Amenorrhoea [Unknown]
